FAERS Safety Report 15232358 (Version 1)
Quarter: 2018Q3

REPORT INFORMATION
  Report Type: Report from Study
  Country: AT (occurrence: AT)
  Receive Date: 20180802
  Receipt Date: 20180802
  Transmission Date: 20181010
  Serious: Yes (Hospitalization, Other)
  Sender: FDA-Public Use
  Company Number: AT-BAYER-2018-135308

PATIENT
  Age: 24 Year
  Sex: Female

DRUGS (1)
  1. JAYDESS [Suspect]
     Active Substance: LEVONORGESTREL
     Dosage: 14 MCG/24HR, CONT
     Route: 015
     Dates: start: 20180222, end: 20180316

REACTIONS (2)
  - Gynaecological chlamydia infection [Recovered/Resolved]
  - Gynaecological chlamydia infection [Recovered/Resolved]

NARRATIVE: CASE EVENT DATE: 20180302
